FAERS Safety Report 8311502-X (Version None)
Quarter: 2012Q2

REPORT INFORMATION
  Report Type: 
  Country: None (occurrence: None)
  Receive Date: 20120425
  Receipt Date: 20120416
  Transmission Date: 20120825
  Serious: Yes (Hospitalization)
  Sender: FDA-Public Use
  Company Number: US-ASTRAZENECA-2010SE59784

PATIENT
  Age: 64 Year
  Sex: Female

DRUGS (4)
  1. METHERGINE [Suspect]
     Indication: MIGRAINE
     Route: 065
     Dates: start: 20080901, end: 20100101
  2. ANOTHER MEDICATION [Suspect]
     Route: 065
  3. ZOMIG [Suspect]
     Route: 048
  4. NEPHROGEN [Concomitant]

REACTIONS (13)
  - INTENTIONAL DRUG MISUSE [None]
  - MEMORY IMPAIRMENT [None]
  - VOMITING [None]
  - MIGRAINE [None]
  - GOITRE [None]
  - ROAD TRAFFIC ACCIDENT [None]
  - HALLUCINATION [None]
  - BALANCE DISORDER [None]
  - VISUAL IMPAIRMENT [None]
  - MALAISE [None]
  - ABDOMINAL DISCOMFORT [None]
  - PNEUMONIA [None]
  - CONFUSIONAL STATE [None]
